FAERS Safety Report 11713156 (Version 1)
Quarter: 2015Q4

REPORT INFORMATION
  Report Type: Spontaneous
  Country: IT (occurrence: IT)
  Receive Date: 20151109
  Receipt Date: 20151109
  Transmission Date: 20160304
  Serious: Yes (Other)
  Sender: FDA-Public Use
  Company Number: PHHY2015IT142530

PATIENT
  Age: 38 Year
  Sex: Male
  Weight: 82 kg

DRUGS (5)
  1. PACLITAXEL TEVA [Concomitant]
     Active Substance: PACLITAXEL
     Indication: SEMINOMA
     Dosage: 500 MG/M2, UNK
     Route: 042
     Dates: start: 20150929, end: 20150929
  2. ZARZIO [Suspect]
     Active Substance: FILGRASTIM
     Indication: NEUTROPENIA
     Dosage: 30000 IU, CYCLIC
     Route: 058
     Dates: start: 20151005, end: 20151010
  3. HOLOXAN [Concomitant]
     Active Substance: IFOSFAMIDE
     Indication: SEMINOMA
     Dosage: 3000 MG/M2, UNK
     Route: 042
     Dates: start: 20150930, end: 20151003
  4. CISPLATIN-TEVA [Concomitant]
     Active Substance: CISPLATIN
     Indication: SEMINOMA
     Dosage: 50 MG/M2, UNK
     Route: 042
     Dates: start: 20150930, end: 20151003
  5. UROMITEXAN [Concomitant]
     Active Substance: MESNA
     Indication: CHEMOTHERAPY UROTHELIAL TOXICITY ATTENUATION
     Dosage: 3000 MG/M2, UNK
     Route: 042
     Dates: start: 20150930, end: 20151003

REACTIONS (2)
  - Dyshidrotic eczema [Unknown]
  - Epiglottic oedema [Unknown]

NARRATIVE: CASE EVENT DATE: 20151019
